FAERS Safety Report 5749575-0 (Version None)
Quarter: 2008Q2

REPORT INFORMATION
  Report Type: 
  Country: None (occurrence: None)
  Receive Date: 20080527
  Receipt Date: 20080519
  Transmission Date: 20081010
  Serious: Yes (Hospitalization)
  Sender: FDA-Public Use
  Company Number: FR-ABBOTT-08P-056-0452648-00

PATIENT
  Sex: Male

DRUGS (4)
  1. ZECLAR [Suspect]
     Indication: DRUG USE FOR UNKNOWN INDICATION
     Route: 048
     Dates: start: 20080303, end: 20080304
  2. IBUPROFEN [Suspect]
     Indication: DRUG USE FOR UNKNOWN INDICATION
     Route: 048
     Dates: start: 20080303, end: 20080304
  3. CODEIN/SULFOGAIACOL [Suspect]
     Indication: DRUG USE FOR UNKNOWN INDICATION
     Route: 048
     Dates: start: 20080303, end: 20080304
  4. PREDNISOLONE/NAPHAZOLINE [Suspect]
     Indication: DRUG USE FOR UNKNOWN INDICATION
     Route: 045
     Dates: start: 20080303, end: 20080304

REACTIONS (4)
  - ANGIOEDEMA [None]
  - CHEST PAIN [None]
  - PAIN [None]
  - THROAT TIGHTNESS [None]
